FAERS Safety Report 8010107-8 (Version None)
Quarter: 2011Q4

REPORT INFORMATION
  Report Type: 
  Country: None (occurrence: None)
  Receive Date: 20111228
  Receipt Date: 20111220
  Transmission Date: 20120403
  Serious: Yes (Hospitalization)
  Sender: FDA-Public Use
  Company Number: AT-BRISTOL-MYERS SQUIBB COMPANY-16249070

PATIENT
  Age: 77 Year
  Sex: Female
  Weight: 60 kg

DRUGS (10)
  1. ASPIRIN [Suspect]
     Dosage: THROMBO ASS 100
  2. TRITTICO RETARD [Concomitant]
  3. NOVALGIN [Concomitant]
  4. PREDNISOLONE [Suspect]
     Dosage: 1 DF : 5-10MG,APREDNISLON
     Route: 048
  5. VOLTAREN [Suspect]
     Dosage: VOLTAREN 100
  6. LISINOPRIL [Concomitant]
  7. CONCOR PLUS [Concomitant]
     Dosage: 1 DF : 5MG/12.5MG
  8. ORENCIA [Suspect]
     Indication: RHEUMATOID ARTHRITIS
     Route: 042
     Dates: start: 20111006
  9. CLOPIDOGREL BISULFATE [Suspect]
  10. PANTOPRAZOLE SODIUM [Concomitant]

REACTIONS (2)
  - GASTROOESOPHAGEAL REFLUX DISEASE [None]
  - HAEMORRHAGIC ANAEMIA [None]
